FAERS Safety Report 8957178 (Version 1)
Quarter: 2012Q4

REPORT INFORMATION
  Report Type: Report from Study
  Country: US (occurrence: US)
  Receive Date: 20121211
  Receipt Date: 20121211
  Transmission Date: 20130627
  Serious: Yes (Hospitalization)
  Sender: FDA-Public Use
  Company Number: US-JNJFOC-20121201723

PATIENT
  Sex: Female
  Weight: 51.26 kg

DRUGS (17)
  1. REMICADE [Suspect]
     Indication: RHEUMATOID ARTHRITIS
     Route: 042
     Dates: start: 201208, end: 201209
  2. NORVASC [Concomitant]
     Route: 065
  3. ASPIRIN [Concomitant]
     Route: 065
  4. COLACE [Concomitant]
     Route: 065
  5. PREDNISONE [Concomitant]
     Route: 065
  6. FEOSOL [Concomitant]
     Route: 065
  7. FOLATE [Concomitant]
     Route: 065
  8. REGLAN [Concomitant]
     Route: 065
  9. LOPRESSOR [Concomitant]
     Route: 065
  10. DIOVAN [Concomitant]
     Route: 065
  11. ALPHAGAN [Concomitant]
     Route: 065
  12. RESTASIS [Concomitant]
     Route: 065
  13. COUMADIN [Concomitant]
     Route: 065
  14. PRILOSEC [Concomitant]
     Route: 065
  15. LIPITOR [Concomitant]
     Route: 065
  16. METHOTREXATE [Concomitant]
     Route: 065
     Dates: end: 201209
  17. VITAMIN B6 [Concomitant]
     Route: 065

REACTIONS (1)
  - Tuberculosis [Not Recovered/Not Resolved]
